FAERS Safety Report 9214995 (Version 1)
Quarter: 2013Q2

REPORT INFORMATION
  Report Type: Report from Study
  Country: CA (occurrence: CA)
  Receive Date: 20130405
  Receipt Date: 20130405
  Transmission Date: 20140414
  Serious: Yes (Other)
  Sender: FDA-Public Use
  Company Number: CA-AMGEN-US372766

PATIENT
  Age: 83 Year
  Sex: Male

DRUGS (17)
  1. DENOSUMAB [Suspect]
     Indication: PROSTATE CANCER
     Dosage: UNK UNK, QMO
     Route: 058
     Dates: start: 20080327, end: 20090714
  2. ROSUVASTATIN CALCIUM [Concomitant]
     Dosage: 10 MG, QD
     Route: 048
     Dates: start: 1996
  3. VALSARTAN [Concomitant]
     Dosage: UNK UNK, QD
     Route: 048
     Dates: start: 200601
  4. WARFARIN SODIUM [Concomitant]
     Dosage: UNK UNK, UNK
     Route: 048
     Dates: start: 200004
  5. DILTIAZEM HYDROCHLORIDE [Concomitant]
     Dosage: 360 MG, QD
     Route: 048
     Dates: start: 2006
  6. GLYCERYL TRINITRATE [Concomitant]
     Dosage: UNK UNK, UNK
  7. DILTIAZEM - SLOW RELEASE [Concomitant]
     Dosage: 360 MG, QD
     Route: 048
     Dates: start: 2000
  8. PARACETAMOL/TRAMADOL HYDROCHLORIDE [Concomitant]
     Dosage: 37.5 MG, PRN
     Route: 048
     Dates: start: 200801
  9. CALCIUM [Concomitant]
     Dosage: 500 MG, QD
     Route: 048
     Dates: start: 2000
  10. ERGOCALCIFEROL [Concomitant]
     Dosage: 46 IU, QD
     Route: 048
     Dates: start: 2000
  11. ACETAMINOPHEN [Concomitant]
     Dosage: 500 MG, BID
     Route: 048
     Dates: start: 2003
  12. COLLAGEN [Concomitant]
     Dosage: UNK UNK, QD
     Route: 048
     Dates: start: 20081006
  13. CYPROTERONE [Concomitant]
     Dosage: 200 MG, QD
     Route: 048
     Dates: start: 200809
  14. DOCUSATE SODIUM [Concomitant]
     Dosage: 100 MG, BID
     Route: 048
     Dates: start: 20081015
  15. SENNA CONCENTRATE [Concomitant]
     Dosage: UNK UNK, BID
     Route: 048
     Dates: start: 20090215
  16. GLYCEROL [Concomitant]
     Dosage: UNK UNK, PRN
     Route: 054
     Dates: start: 20090610
  17. GOSERELIN [Concomitant]
     Dosage: 10.8 MG, Q3MO
     Route: 065
     Dates: start: 20051103

REACTIONS (1)
  - Osteonecrosis of jaw [Not Recovered/Not Resolved]
